FAERS Safety Report 9160113 (Version 1)
Quarter: 2013Q1

REPORT INFORMATION
  Report Type: Spontaneous
  Country: US (occurrence: None)
  Receive Date: 20130220
  Receipt Date: 20130220
  Transmission Date: 20140127
  Serious: Yes (Other)
  Sender: FDA-Public Use
  Company Number: 1212-814

PATIENT
  Age: 70 Year
  Sex: Female
  Weight: 82.56 kg

DRUGS (13)
  1. VEGF TRAP-EYE (INJECTION)(VEGF TRAP) [Suspect]
     Indication: DIABETIC RETINAL OEDEMA
     Dates: start: 20121121
  2. VITAMIN D (ERGOCALCIFEROL) [Concomitant]
  3. NAPROSYN (NAPROXEN) [Concomitant]
  4. OMEGA-3 (SALMO SALAR OIL)(TABLET) [Concomitant]
  5. TRILIPIX (CHOLINE FENOFIBRATE) [Concomitant]
  6. DIOVAN (VALSARTAN)(TABLET) [Concomitant]
  7. ALLOPURINOL [Concomitant]
  8. LIPITOR (ATORVASTATIN CALCIUM) [Concomitant]
  9. GLYBL METFORMIN (GLIBOMET) [Concomitant]
  10. GLUCOSAMINE (GLUCOSAMINE)(TABLET) [Concomitant]
  11. LEVEMIR (INSULIN DETEMIR) [Concomitant]
  12. WARFARIN (WARFARIN) [Concomitant]
  13. GABAPENTIN (GABAPENTIN) [Concomitant]

REACTIONS (7)
  - Optic nerve disorder [None]
  - Vitreous haemorrhage [None]
  - Hyphaema [None]
  - Retinal haemorrhage [None]
  - Retinal aneurysm [None]
  - Retinal exudates [None]
  - Vitreous detachment [None]
